FAERS Safety Report 16436767 (Version 2)
Quarter: 2019Q3

REPORT INFORMATION
  Report Type: Spontaneous
  Country: GB (occurrence: GB)
  Receive Date: 20190614
  Receipt Date: 20190708
  Transmission Date: 20191004
  Serious: Yes (Hospitalization)
  Sender: FDA-Public Use
  Company Number: GB-CANTON LABORATORIES, LLC-2068250

PATIENT
  Age: 41 Year
  Sex: Male
  Weight: 75 kg

DRUGS (5)
  1. LENVIMA [Suspect]
     Active Substance: LENVATINIB
     Route: 048
     Dates: start: 20190503, end: 20190521
  2. ZOMORPH [Concomitant]
     Active Substance: MORPHINE SULFATE
     Route: 048
     Dates: start: 201902
  3. DEXAMETHASONE. [Concomitant]
     Active Substance: DEXAMETHASONE
     Route: 048
     Dates: start: 201905
  4. NAPROSYN [Suspect]
     Active Substance: NAPROXEN
     Indication: CANCER PAIN
     Route: 048
     Dates: start: 201902, end: 20190503
  5. OMEPRAZOLE. [Concomitant]
     Active Substance: OMEPRAZOLE
     Route: 048
     Dates: start: 201902

REACTIONS (2)
  - Gastric ulcer haemorrhage [Recovering/Resolving]
  - Drug interaction [Recovering/Resolving]

NARRATIVE: CASE EVENT DATE: 20190521
